FAERS Safety Report 12208535 (Version 1)
Quarter: 2016Q1

REPORT INFORMATION
  Report Type: Spontaneous
  Country: US (occurrence: US)
  Receive Date: 20160324
  Receipt Date: 20160324
  Transmission Date: 20160526
  Serious: Yes (Hospitalization, Other)
  Sender: FDA-Public Use
  Company Number: US-ACTAVIS-2016-05770

PATIENT
  Age: 41 Year
  Sex: Male

DRUGS (4)
  1. PHENYTOIN (AMALLC) [Suspect]
     Active Substance: PHENYTOIN
     Dosage: 1000 MG, SINGLE (LOADING DOSE)
     Route: 048
  2. PHENYTOIN (AMALLC) [Suspect]
     Active Substance: PHENYTOIN
     Indication: SEIZURE
     Dosage: UNK
     Route: 065
  3. PHENYTOIN (AMALLC) [Suspect]
     Active Substance: PHENYTOIN
     Dosage: UNK
     Route: 065
  4. HEROIN [Concomitant]
     Active Substance: DIACETYLMORPHINE
     Indication: DRUG DEPENDENCE
     Dosage: UNK
     Route: 065

REACTIONS (11)
  - Dizziness [Recovered/Resolved]
  - Toxicity to various agents [Recovered/Resolved]
  - Anticonvulsant drug level below therapeutic [Recovered/Resolved]
  - Seizure [Recovered/Resolved]
  - Anticonvulsant drug level above therapeutic [Recovered/Resolved]
  - Paradoxical drug reaction [Recovered/Resolved]
  - Somnolence [Recovered/Resolved]
  - Nausea [Recovered/Resolved]
  - Vomiting [Recovered/Resolved]
  - Treatment noncompliance [Recovered/Resolved]
  - Nystagmus [Recovered/Resolved]
